FAERS Safety Report 19616770 (Version 2)
Quarter: 2022Q3

REPORT INFORMATION
  Report Type: Spontaneous
  Country: US (occurrence: US)
  Receive Date: 20210727
  Receipt Date: 20220725
  Transmission Date: 20221026
  Serious: No
  Sender: FDA-Public Use
  Company Number: US-ABBVIE-21K-163-3903022-00

PATIENT
  Sex: Female
  Weight: 83.990 kg

DRUGS (2)
  1. SYNTHROID [Suspect]
     Active Substance: LEVOTHYROXINE SODIUM
     Indication: Hypothyroidism
     Route: 048
     Dates: start: 200211
  2. SYNTHROID [Suspect]
     Active Substance: LEVOTHYROXINE SODIUM
     Route: 048
     Dates: start: 2006

REACTIONS (22)
  - Dizziness [Recovering/Resolving]
  - Vision blurred [Not Recovered/Not Resolved]
  - Energy increased [Recovering/Resolving]
  - Head discomfort [Recovering/Resolving]
  - Blood pressure increased [Recovered/Resolved]
  - Feeling abnormal [Recovering/Resolving]
  - Feeling abnormal [Not Recovered/Not Resolved]
  - Dizziness [Not Recovered/Not Resolved]
  - Skin disorder [Unknown]
  - Fear [Unknown]
  - Muscle spasms [Unknown]
  - Heart rate increased [Recovered/Resolved]
  - Feeling abnormal [Not Recovered/Not Resolved]
  - General symptom [Unknown]
  - Paraesthesia [Unknown]
  - Loss of personal independence in daily activities [Not Recovered/Not Resolved]
  - Heart rate decreased [Not Recovered/Not Resolved]
  - Somnolence [Not Recovered/Not Resolved]
  - Dyspnoea [Recovered/Resolved]
  - Nervousness [Unknown]
  - Fatigue [Unknown]
  - Drug ineffective [Recovering/Resolving]

NARRATIVE: CASE EVENT DATE: 20210101
